FAERS Safety Report 20696396 (Version 1)
Quarter: 2022Q2

REPORT INFORMATION
  Report Type: Spontaneous
  Country: US (occurrence: US)
  Receive Date: 20220411
  Receipt Date: 20220411
  Transmission Date: 20220721
  Serious: Yes (Hospitalization)
  Sender: FDA-Public Use
  Company Number: US-RIGEL PHARMACEUTICALS, INC.-2022FOS000160

PATIENT
  Sex: Female
  Weight: 149.66 kg

DRUGS (3)
  1. TAVALISSE [Suspect]
     Active Substance: FOSTAMATINIB
     Indication: Adverse drug reaction
     Dosage: 150 MG, BID
     Route: 048
     Dates: start: 20220107
  2. TAVALISSE [Suspect]
     Active Substance: FOSTAMATINIB
     Indication: Hepatic steatosis
  3. TAVALISSE [Suspect]
     Active Substance: FOSTAMATINIB
     Indication: Impaired gastric emptying

REACTIONS (2)
  - Swelling [Unknown]
  - Off label use [Unknown]

NARRATIVE: CASE EVENT DATE: 20220101
